FAERS Safety Report 6490613-8 (Version None)
Quarter: 2009Q4

REPORT INFORMATION
  Report Type: 
  Country: None (occurrence: None)
  Receive Date: 20091211
  Receipt Date: 20091203
  Transmission Date: 20100525
  Serious: Yes (Death, Life-Threatening, Hospitalization)
  Sender: FDA-Public Use
  Company Number: SI-WYE-H11040409

PATIENT
  Age: 66 Year
  Sex: Male

DRUGS (8)
  1. CORDARONE [Suspect]
     Indication: ATRIAL FIBRILLATION
     Dates: start: 20090713, end: 20090806
  2. ALLOPURINOL [Concomitant]
     Dosage: UNKNOWN
     Route: 048
  3. LANITOP [Concomitant]
     Dosage: UNKNOWN
     Route: 048
  4. CONCOR [Concomitant]
  5. MAREVAN [Concomitant]
     Dosage: UNKNOWN
     Route: 048
  6. ALDACTONE [Concomitant]
     Dosage: 25 MG
     Route: 048
  7. TRITACE [Concomitant]
     Dosage: 5 MG
     Route: 048
  8. EDEMID [Concomitant]
     Dosage: UNKNOWN
     Route: 048

REACTIONS (3)
  - CARDIAC ARREST [None]
  - RENAL FAILURE [None]
  - VASCULITIS NECROTISING [None]
